FAERS Safety Report 24961491 (Version 8)
Quarter: 2025Q3

REPORT INFORMATION
  Report Type: Report from Study
  Country: EU (occurrence: EU)
  Receive Date: 20250212
  Receipt Date: 20250729
  Transmission Date: 20251020
  Serious: Yes (Hospitalization)
  Sender: ABBVIE
  Company Number: EU-ABBVIE-6126884

PATIENT
  Age: 77 Year
  Sex: Female

DRUGS (9)
  1. DUOPA [Suspect]
     Active Substance: CARBIDOPA\LEVODOPA
     Indication: Parkinson^s disease
     Route: 050
     Dates: start: 20210716
  2. DUOPA [Suspect]
     Active Substance: CARBIDOPA\LEVODOPA
  3. CARBIDOPA\LEVODOPA [Concomitant]
     Active Substance: CARBIDOPA\LEVODOPA
     Indication: Product used for unknown indication
     Dosage: 25/100 5 TIMES A DAY?ROP UNKNOWN
  4. AZILECT [Concomitant]
     Active Substance: RASAGILINE MESYLATE
     Indication: Product used for unknown indication
     Dosage: ROP UNKNOWN
  5. CLONAZEPAM [Concomitant]
     Active Substance: CLONAZEPAM
     Indication: Product used for unknown indication
  6. MIRTAZAPINE [Concomitant]
     Active Substance: MIRTAZAPINE
     Indication: Product used for unknown indication
  7. SINEMET CR [Concomitant]
     Active Substance: CARBIDOPA\LEVODOPA
     Indication: Product used for unknown indication
  8. LACTULOSE [Concomitant]
     Active Substance: LACTULOSE
     Indication: Product used for unknown indication
     Dosage: ROP UNKNOWN
  9. Duodopa [Concomitant]
     Indication: Product used for unknown indication

REACTIONS (3)
  - Cerebrovascular accident [Recovered/Resolved]
  - Device breakage [Unknown]
  - Device occlusion [Not Recovered/Not Resolved]

NARRATIVE: CASE EVENT DATE: 20250203
